FAERS Safety Report 7525569-X (Version None)
Quarter: 2011Q2

REPORT INFORMATION
  Report Type: 
  Country: None (occurrence: None)
  Receive Date: 20110526
  Receipt Date: 20110513
  Transmission Date: 20111010
  Serious: Yes (Hospitalization, Other)
  Sender: FDA-Public Use
  Company Number: 2011MA005881

PATIENT
  Age: 67 Year
  Sex: Female

DRUGS (4)
  1. BISOPROLOL FUMARATE [Concomitant]
  2. MAGNESIUM [Concomitant]
  3. FLUOXETINE [Suspect]
     Indication: DEPRESSION
     Dosage: 60 MG
  4. ONDANSETRON [Concomitant]

REACTIONS (8)
  - SYNCOPE [None]
  - TORSADE DE POINTES [None]
  - ELECTROCARDIOGRAM T WAVE INVERSION [None]
  - STRESS CARDIOMYOPATHY [None]
  - HYPOMAGNESAEMIA [None]
  - EMOTIONAL DISORDER [None]
  - ACUTE MYOCARDIAL INFARCTION [None]
  - ELECTROLYTE DEPLETION [None]
